FAERS Safety Report 17802578 (Version 3)
Quarter: 2020Q4

REPORT INFORMATION
  Report Type: Spontaneous
  Country: NL (occurrence: NL)
  Receive Date: 20200519
  Receipt Date: 20201118
  Transmission Date: 20210113
  Serious: Yes (Death, Life-Threatening, Hospitalization, Other)
  Sender: FDA-Public Use
  Company Number: NVSC2020NL135283

PATIENT
  Age: 74 Year
  Sex: Female

DRUGS (55)
  1. METOPROLOL. [Suspect]
     Active Substance: METOPROLOL
     Indication: HYPERTENSION
     Dosage: 100 MG, QD
     Route: 048
  2. FUROSEMIDE. [Concomitant]
     Active Substance: FUROSEMIDE
     Dosage: 10 MG/ML
     Route: 065
     Dates: start: 20191202, end: 20191202
  3. GLUCOSE [Concomitant]
     Active Substance: DEXTROSE
     Dosage: UNK
     Route: 065
     Dates: start: 20191128, end: 20191130
  4. MAGNESIUM SULFATE. [Concomitant]
     Active Substance: MAGNESIUM SULFATE
     Dosage: 2000 MG
     Route: 065
     Dates: start: 20191201, end: 20191201
  5. MAGNESIUM SULFATE. [Concomitant]
     Active Substance: MAGNESIUM SULFATE
     Dosage: 2000 MG
     Route: 065
     Dates: start: 20191203, end: 20191203
  6. CEFAZOLIN [Concomitant]
     Active Substance: CEFAZOLIN
     Indication: PRODUCT USED FOR UNKNOWN INDICATION
     Dosage: 100 MG/ML
     Route: 065
     Dates: start: 20191128, end: 20191128
  7. NIFEDIPINE. [Concomitant]
     Active Substance: NIFEDIPINE
     Dosage: 5 MG
     Route: 065
     Dates: start: 20191203, end: 20191203
  8. NIFEDIPINE. [Concomitant]
     Active Substance: NIFEDIPINE
     Dosage: 5 MG
     Route: 065
     Dates: start: 20191207
  9. GLUCOSE [Concomitant]
     Active Substance: DEXTROSE
     Indication: PRODUCT USED FOR UNKNOWN INDICATION
     Dosage: UNK
     Route: 065
     Dates: start: 20191127, end: 20191127
  10. LIDOCAINE. [Concomitant]
     Active Substance: LIDOCAINE
     Indication: PRODUCT USED FOR UNKNOWN INDICATION
     Dosage: 10 MG/ML
     Route: 065
     Dates: start: 20191128, end: 20191128
  11. AMIODARONE [Concomitant]
     Active Substance: AMIODARONE
     Indication: PRODUCT USED FOR UNKNOWN INDICATION
     Dosage: UNK
     Route: 065
     Dates: start: 20191201, end: 20191201
  12. DIAMOX SEQUELS [Concomitant]
     Active Substance: ACETAZOLAMIDE
     Indication: PRODUCT USED FOR UNKNOWN INDICATION
     Dosage: UNK
     Route: 065
     Dates: start: 20191130, end: 20191203
  13. SUFENTANIL [Concomitant]
     Active Substance: SUFENTANIL
     Indication: PRODUCT USED FOR UNKNOWN INDICATION
     Dosage: 5 MCG ML
     Route: 065
     Dates: start: 20191128, end: 20191128
  14. PROPOFOL. [Concomitant]
     Active Substance: PROPOFOL
     Indication: PRODUCT USED FOR UNKNOWN INDICATION
     Dosage: 10 MG/ML
     Route: 065
     Dates: start: 20191128, end: 20191128
  15. ATROPINE. [Concomitant]
     Active Substance: ATROPINE
     Indication: PRODUCT USED FOR UNKNOWN INDICATION
     Dosage: 0.5 MG/ML
     Route: 065
     Dates: start: 20191128, end: 20191208
  16. CEFOTAXIME [Concomitant]
     Active Substance: CEFOTAXIME SODIUM
     Indication: PRODUCT USED FOR UNKNOWN INDICATION
     Dosage: UNK
     Route: 065
     Dates: start: 20191128, end: 20191128
  17. XARELTO [Suspect]
     Active Substance: RIVAROXABAN
     Indication: ATRIAL FIBRILLATION
     Dosage: 20 MG, QD
     Route: 048
     Dates: start: 20171207, end: 20191127
  18. FUROSEMIDE. [Concomitant]
     Active Substance: FUROSEMIDE
     Indication: PRODUCT USED FOR UNKNOWN INDICATION
     Dosage: 10 MG/ML
     Route: 065
     Dates: start: 20191128, end: 20191128
  19. MAGNESIUM SULFATE. [Concomitant]
     Active Substance: MAGNESIUM SULFATE
     Indication: PRODUCT USED FOR UNKNOWN INDICATION
     Dosage: 2000 MG
     Route: 065
     Dates: start: 20191128, end: 20191128
  20. POTASSIUM CHLORIDE. [Concomitant]
     Active Substance: POTASSIUM CHLORIDE
     Dosage: 75 MG/ML
     Route: 065
     Dates: start: 20191207
  21. MOVICOLON [Concomitant]
     Active Substance: POLYETHYLENE GLYCOL 3350\POTASSIUM CHLORIDE\SODIUM BICARBONATE\SODIUM CHLORIDE
     Indication: PRODUCT USED FOR UNKNOWN INDICATION
     Dosage: 1.8 G
     Route: 065
     Dates: start: 20191206
  22. COFACT [Suspect]
     Active Substance: COAGULATION FACTOR IX HUMAN\COAGULATION FACTOR VII HUMAN\COAGULATION FACTOR X HUMAN\PROTEIN C\PROTEIN S HUMAN\PROTHROMBIN
     Indication: PROCOAGULANT THERAPY
  23. PANTOPRAZOLE [Concomitant]
     Active Substance: PANTOPRAZOLE
     Indication: PRODUCT USED FOR UNKNOWN INDICATION
     Dosage: 20 MG
     Route: 065
     Dates: start: 20191127
  24. CLONIDINE. [Concomitant]
     Active Substance: CLONIDINE
     Indication: PRODUCT USED FOR UNKNOWN INDICATION
     Dosage: UNK
     Route: 065
     Dates: start: 20191130, end: 20191130
  25. INSULIN GLARGINE [Concomitant]
     Active Substance: INSULIN GLARGINE
     Indication: PRODUCT USED FOR UNKNOWN INDICATION
     Dosage: UNK
     Route: 065
     Dates: start: 20191227
  26. INSULIN ASPART [Concomitant]
     Active Substance: INSULIN ASPART
     Indication: PRODUCT USED FOR UNKNOWN INDICATION
     Dosage: UNK
     Route: 065
     Dates: start: 20191127
  27. NIFEDIPINE. [Concomitant]
     Active Substance: NIFEDIPINE
     Indication: PRODUCT USED FOR UNKNOWN INDICATION
     Dosage: 5 MG
     Route: 065
     Dates: start: 20191202, end: 20191202
  28. NIFEDIPINE. [Concomitant]
     Active Substance: NIFEDIPINE
     Dosage: 5 MG
     Route: 065
     Dates: start: 20191203
  29. MAGNESIUM SULFATE. [Concomitant]
     Active Substance: MAGNESIUM SULFATE
     Dosage: 2000 MG
     Route: 065
     Dates: start: 20191209
  30. MORPHINE [Concomitant]
     Active Substance: MORPHINE
     Indication: PRODUCT USED FOR UNKNOWN INDICATION
     Dosage: 1 MG/ML
     Route: 065
     Dates: start: 20191127
  31. MORPHINE [Concomitant]
     Active Substance: MORPHINE
     Dosage: 1 MG/ML
     Route: 065
     Dates: start: 20191207
  32. STEROFUNDIN ISO [Concomitant]
     Dosage: 500 ML
     Route: 065
     Dates: start: 20191208, end: 20191209
  33. FUROSEMIDE. [Concomitant]
     Active Substance: FUROSEMIDE
     Dosage: 10 MG/ML
     Route: 065
     Dates: start: 20191129, end: 20191129
  34. FRAXIPARINE [Concomitant]
     Active Substance: NADROPARIN CALCIUM
     Indication: PRODUCT USED FOR UNKNOWN INDICATION
     Dosage: 9500 IU ML
     Route: 065
     Dates: start: 20191127
  35. ROCURONIUM [Concomitant]
     Active Substance: ROCURONIUM BROMIDE
     Dosage: 10 MG/ML
     Route: 065
     Dates: start: 20191208, end: 20191208
  36. POTASSIUM CHLORIDE. [Concomitant]
     Active Substance: POTASSIUM CHLORIDE
     Indication: PRODUCT USED FOR UNKNOWN INDICATION
     Dosage: 75 MG/ML
     Route: 065
     Dates: start: 20191128
  37. STEROFUNDIN ISO [Concomitant]
     Indication: PRODUCT USED FOR UNKNOWN INDICATION
     Dosage: 500 ML
     Route: 065
     Dates: start: 20191128, end: 20191128
  38. LABETALOL [Suspect]
     Active Substance: LABETALOL\LABETALOL HYDROCHLORIDE
     Indication: HAEMORRHAGE INTRACRANIAL
     Dosage: 0 - 75 MG/H
     Route: 042
     Dates: start: 20191127, end: 20191128
  39. COFACT [Suspect]
     Active Substance: COAGULATION FACTOR IX HUMAN\COAGULATION FACTOR VII HUMAN\COAGULATION FACTOR X HUMAN\PROTEIN C\PROTEIN S HUMAN\PROTHROMBIN
     Indication: CEREBRAL HAEMORRHAGE
     Dosage: 3000 UNK, ONCE/SINGLE
     Route: 042
     Dates: start: 20191127, end: 20191127
  40. AMIODARONE [Concomitant]
     Active Substance: AMIODARONE
     Dosage: UNK
     Route: 065
     Dates: start: 20191204, end: 20191204
  41. DIAMOX SEQUELS [Concomitant]
     Active Substance: ACETAZOLAMIDE
     Dosage: UNK
     Route: 065
     Dates: start: 20191203, end: 20191203
  42. PARACETAMOL [Concomitant]
     Active Substance: ACETAMINOPHEN
     Indication: PRODUCT USED FOR UNKNOWN INDICATION
     Dosage: UNK
     Route: 065
  43. PEPTAMEN AF [Concomitant]
     Indication: PRODUCT USED FOR UNKNOWN INDICATION
     Dosage: UNK
     Route: 065
     Dates: start: 20191128, end: 20191224
  44. ONDANSETRON [Concomitant]
     Active Substance: ONDANSETRON
     Indication: PRODUCT USED FOR UNKNOWN INDICATION
     Dosage: 2 MG/ML
     Route: 065
     Dates: start: 20191127, end: 20191127
  45. SODIUM PHOSPHATE, MONOBASIC, DIHYDRATE [Concomitant]
     Indication: PRODUCT USED FOR UNKNOWN INDICATION
     Dosage: 1 MM OL ML
     Route: 065
     Dates: start: 20191203, end: 20191203
  46. CALCIUM CARBONATE. [Concomitant]
     Active Substance: CALCIUM CARBONATE
     Indication: PRODUCT USED FOR UNKNOWN INDICATION
     Dosage: UNK(500/800)
     Route: 065
  47. COFACT [Suspect]
     Active Substance: COAGULATION FACTOR IX HUMAN\COAGULATION FACTOR VII HUMAN\COAGULATION FACTOR X HUMAN\PROTEIN C\PROTEIN S HUMAN\PROTHROMBIN
     Indication: HAEMOSTASIS
  48. FUROSEMIDE. [Concomitant]
     Active Substance: FUROSEMIDE
     Dosage: 10 MG/ML
     Route: 065
     Dates: start: 20191130, end: 20191130
  49. FUROSEMIDE. [Concomitant]
     Active Substance: FUROSEMIDE
     Dosage: 10 MG/ML
     Route: 065
     Dates: start: 20191201, end: 20191201
  50. AMIODARONE [Concomitant]
     Active Substance: AMIODARONE
     Dosage: UNK
     Route: 065
     Dates: start: 20191209
  51. ROCURONIUM [Concomitant]
     Active Substance: ROCURONIUM BROMIDE
     Indication: PRODUCT USED FOR UNKNOWN INDICATION
     Dosage: 10 MG/ML
     Route: 065
     Dates: start: 20191128, end: 20191208
  52. FISH OIL OMEGA 3 [Concomitant]
     Active Substance: FISH OIL
     Indication: PRODUCT USED FOR UNKNOWN INDICATION
     Route: 065
  53. PROPOFOL. [Concomitant]
     Active Substance: PROPOFOL
     Dosage: 10 MG/ML
     Route: 065
     Dates: start: 20191208, end: 20191208
  54. ONDANSETRON [Concomitant]
     Active Substance: ONDANSETRON
     Dosage: 2 MG/ML
     Route: 065
     Dates: start: 20191128, end: 20191128
  55. SODIUM PHOSPHATE, MONOBASIC, DIHYDRATE [Concomitant]
     Dosage: 1 MM OL ML
     Route: 065
     Dates: start: 20191204, end: 20191204

REACTIONS (8)
  - Aspiration [Fatal]
  - Hypotension [Recovered/Resolved]
  - Respiratory failure [Fatal]
  - Hydrocephalus [Recovering/Resolving]
  - Fall [Unknown]
  - Pulseless electrical activity [Recovered/Resolved]
  - Pneumonia [Recovering/Resolving]
  - Cerebral haemorrhage [Unknown]

NARRATIVE: CASE EVENT DATE: 20191127
